FAERS Safety Report 8052715-4 (Version None)
Quarter: 2012Q1

REPORT INFORMATION
  Report Type: 
  Country: None (occurrence: None)
  Receive Date: 20120118
  Receipt Date: 20120118
  Transmission Date: 20120608
  Serious: No
  Sender: FDA-Public Use
  Company Number: None

PATIENT
  Age: 37 Year
  Sex: Female
  Weight: 122.46 kg

DRUGS (2)
  1. ADDERALL GENERIC XR CAPSULE [Suspect]
     Indication: ATTENTION DEFICIT/HYPERACTIVITY DISORDER
     Dosage: 30MG PER CAPSULE
     Route: 048
     Dates: start: 20100801, end: 20110117
  2. PROZAC GENERIC CAPSULE [Concomitant]
     Indication: DEPRESSION
     Dosage: 20 MG PER CAPSULE
     Route: 048
     Dates: start: 20100101, end: 20110117

REACTIONS (13)
  - LETHARGY [None]
  - AGITATION [None]
  - CONFUSIONAL STATE [None]
  - MENSTRUAL DISORDER [None]
  - PRODUCT LABEL ISSUE [None]
  - HUNGER [None]
  - VICTIM OF CHILD ABUSE [None]
  - SUICIDAL IDEATION [None]
  - PANIC ATTACK [None]
  - INCREASED APPETITE [None]
  - DEPRESSION [None]
  - FATIGUE [None]
  - PRODUCT PACKAGING QUANTITY ISSUE [None]
